FAERS Safety Report 18168499 (Version 2)
Quarter: 2020Q4

REPORT INFORMATION
  Report Type: Report from Study
  Country: None (occurrence: US)
  Receive Date: 20200819
  Receipt Date: 20201027
  Transmission Date: 20210113
  Serious: Yes (Other)
  Sender: FDA-Public Use
  Company Number: US-ABBVIE-20K-163-3450274-00

PATIENT
  Age: 68 Year
  Sex: Male
  Weight: 140.74 kg

DRUGS (1)
  1. HUMIRA [Suspect]
     Active Substance: ADALIMUMAB
     Indication: HIDRADENITIS
     Route: 058
     Dates: start: 201910

REACTIONS (5)
  - Cardiac operation [Unknown]
  - Cardiac procedure complication [Recovered/Resolved]
  - Sternal fracture [Unknown]
  - Cardiac procedure complication [Unknown]
  - Skin lesion [Unknown]

NARRATIVE: CASE EVENT DATE: 202006
